FAERS Safety Report 6126038-4 (Version None)
Quarter: 2009Q1

REPORT INFORMATION
  Report Type: 
  Country: None (occurrence: None)
  Receive Date: 20090320
  Receipt Date: 20090310
  Transmission Date: 20090719
  Serious: Yes (Hospitalization)
  Sender: FDA-Public Use
  Company Number: US-ROCHE-619052

PATIENT
  Age: 44 Year
  Sex: Male

DRUGS (20)
  1. ENFUVIRTIDE [Suspect]
     Indication: HIV INFECTION
     Route: 065
     Dates: start: 20080729
  2. RALTEGRAVIR [Suspect]
     Indication: HIV INFECTION
     Route: 065
     Dates: start: 20080729
  3. DARUNAVIR [Suspect]
     Indication: HIV INFECTION
     Route: 065
     Dates: start: 20080729
  4. RITONAVIR [Suspect]
     Indication: HIV INFECTION
     Route: 065
     Dates: start: 20080729
  5. ETRAVIRINE [Suspect]
     Indication: HIV INFECTION
     Route: 065
     Dates: start: 20080729
  6. HYDROCHLOROTHIAZIDE [Concomitant]
  7. DAPSONE [Concomitant]
  8. LOPID [Concomitant]
  9. NEURONTIN [Concomitant]
  10. ACYCLOVIR [Concomitant]
  11. CELEXA [Concomitant]
  12. DOXEPIN HCL [Concomitant]
  13. NYSTATIN [Concomitant]
  14. ASPIRIN [Concomitant]
  15. LISINOPRIL [Concomitant]
  16. IMODIUM [Concomitant]
  17. NIZORAL [Concomitant]
  18. ALBUTEROL [Concomitant]
  19. LEXAPRO [Concomitant]
  20. PLEXION [Concomitant]
     Dosage: DRUG: PLEXION TOPICAL CLEANSER.
     Route: 061

REACTIONS (1)
  - NEUROLOGICAL SYMPTOM [None]
